FAERS Safety Report 17021446 (Version 1)
Quarter: 2019Q4

REPORT INFORMATION
  Report Type: Spontaneous
  Country: US (occurrence: US)
  Receive Date: 20191112
  Receipt Date: 20191112
  Transmission Date: 20200122
  Serious: No
  Sender: FDA-Public Use
  Company Number: US-PFIZER INC-2019487015

PATIENT
  Age: 53 Year
  Sex: Male
  Weight: 72.56 kg

DRUGS (1)
  1. CHANTIX [Suspect]
     Active Substance: VARENICLINE TARTRATE
     Indication: SMOKING CESSATION THERAPY
     Dosage: UNK
     Dates: start: 2017, end: 2017

REACTIONS (4)
  - Mood swings [Unknown]
  - Irritability [Unknown]
  - Insomnia [Unknown]
  - Anger [Unknown]

NARRATIVE: CASE EVENT DATE: 2017
